FAERS Safety Report 9395887 (Version 1)
Quarter: 2013Q3

REPORT INFORMATION
  Report Type: Spontaneous
  Country: FR (occurrence: FR)
  Receive Date: 20130711
  Receipt Date: 20130711
  Transmission Date: 20140515
  Serious: Yes (Hospitalization)
  Sender: FDA-Public Use
  Company Number: FR-GLAXOSMITHKLINE-B0905765A

PATIENT
  Age: 62 Year
  Sex: Male

DRUGS (7)
  1. BECOTIDE [Suspect]
     Indication: COUGH
     Route: 055
     Dates: start: 201304
  2. PNEUMOREL [Suspect]
     Indication: COUGH
     Route: 048
     Dates: start: 201304
  3. MAXILASE [Suspect]
     Indication: COUGH
     Route: 048
     Dates: start: 201304
  4. ATENOLOL [Concomitant]
     Dosage: 50MG PER DAY
     Route: 048
  5. PLAVIX [Concomitant]
     Dosage: 75MG PER DAY
     Route: 048
  6. CRESTOR [Concomitant]
     Dosage: 10MG PER DAY
     Route: 048
  7. COVERSYL [Concomitant]
     Dosage: 4MG TWICE PER DAY
     Route: 048

REACTIONS (3)
  - Pancreatitis acute [Recovered/Resolved]
  - Dyspepsia [Recovered/Resolved]
  - Adenoma benign [Unknown]
